FAERS Safety Report 9905273 (Version 1)
Quarter: 2014Q1

REPORT INFORMATION
  Report Type: Spontaneous
  Country: GB (occurrence: None)
  Receive Date: 20140211
  Receipt Date: 20140211
  Transmission Date: 20141002
  Serious: Yes (Hospitalization, Disabling)
  Sender: FDA-Public Use
  Company Number: 2014P1000949

PATIENT
  Age: 37 Year
  Sex: Male

DRUGS (4)
  1. DIAZEPAM [Suspect]
     Route: 048
  2. METHADONE [Suspect]
     Route: 048
  3. CANNABIS [Suspect]
  4. ALCOHOL [Suspect]

REACTIONS (25)
  - Hypoxic-ischaemic encephalopathy [None]
  - Unresponsive to stimuli [None]
  - Miosis [None]
  - Tachycardia [None]
  - Hypotension [None]
  - Renal impairment [None]
  - Hyperkalaemia [None]
  - Hypoglycaemia [None]
  - Confusional state [None]
  - Paranoia [None]
  - Blood creatine phosphokinase increased [None]
  - Incontinence [None]
  - Abasia [None]
  - Myoclonus [None]
  - Bradykinesia [None]
  - Hyperreflexia [None]
  - Opisthotonus [None]
  - Muscle spasms [None]
  - Tachypnoea [None]
  - Decorticate posture [None]
  - Decerebrate posture [None]
  - Overdose [None]
  - Toxicity to various agents [None]
  - Urinary incontinence [None]
  - Faecal incontinence [None]
